FAERS Safety Report 21160913 (Version 1)
Quarter: 2022Q3

REPORT INFORMATION
  Report Type: Report from Study
  Country: IT (occurrence: IT)
  Receive Date: 20220802
  Receipt Date: 20220802
  Transmission Date: 20221027
  Serious: Yes (Other)
  Sender: FDA-Public Use
  Company Number: None

PATIENT
  Age: 90 Year
  Sex: Female

DRUGS (4)
  1. GABAPENTIN [Suspect]
     Active Substance: GABAPENTIN
     Dosage: 100 MG
     Route: 048
     Dates: start: 20220101, end: 20220612
  2. FENTANYL [Suspect]
     Active Substance: FENTANYL
     Dosage: 12 UG
     Dates: start: 20220101, end: 20220612
  3. MEMANTINE HYDROCHLORIDE [Suspect]
     Active Substance: MEMANTINE HYDROCHLORIDE
     Dosage: 20 MG
     Dates: start: 20220101, end: 20220612
  4. NALOXONE HYDROCHLORIDE\OXYCODONE HYDROCHLORIDE [Suspect]
     Active Substance: NALOXONE HYDROCHLORIDE\OXYCODONE HYDROCHLORIDE
     Dosage: 5 MG, 2X/DAY (EVERY 12 HOURS)
     Dates: start: 20220101, end: 20220612

REACTIONS (1)
  - Intestinal pseudo-obstruction [Recovering/Resolving]

NARRATIVE: CASE EVENT DATE: 20220612
